FAERS Safety Report 24339168 (Version 2)
Quarter: 2024Q3

REPORT INFORMATION
  Report Type: Report from Study
  Country: IT (occurrence: IT)
  Receive Date: 20240919
  Receipt Date: 20240926
  Transmission Date: 20241016
  Serious: Yes (Death)
  Sender: UCB
  Company Number: IT-UCBSA-2024043971

PATIENT
  Sex: Male

DRUGS (3)
  1. VIMPAT [Suspect]
     Active Substance: LACOSAMIDE
     Indication: Product used for unknown indication
     Dosage: 100 MILLIGRAM, 2X/DAY (BID)
     Dates: start: 202104, end: 20240817
  2. LEVETIRACETAM [Suspect]
     Active Substance: LEVETIRACETAM
     Indication: Product used for unknown indication
     Dosage: 1000 MILLIGRAM, 2X/DAY (BID)
     Dates: start: 202104
  3. LEVETIRACETAM [Suspect]
     Active Substance: LEVETIRACETAM
     Dosage: UNK MILLIGRAM
     Route: 042

REACTIONS (3)
  - Renal failure [Fatal]
  - Bronchitis [Unknown]
  - Dysphagia [Unknown]

NARRATIVE: CASE EVENT DATE: 20240701
